FAERS Safety Report 10429530 (Version 1)
Quarter: 2014Q3

REPORT INFORMATION
  Report Type: Spontaneous
  Country: US (occurrence: None)
  Receive Date: 20140902
  Receipt Date: 20140902
  Transmission Date: 20150326
  Serious: Yes (Hospitalization, Disabling)
  Sender: FDA-Public Use
  Company Number: None

PATIENT
  Age: 41 Year
  Sex: Female
  Weight: 63.5 kg

DRUGS (1)
  1. LEVAQUIN [Suspect]
     Active Substance: LEVOFLOXACIN
     Indication: SINUSITIS
     Dosage: 500 MG ONCE DAILY TAKEN BY MOUTH 3 WEEKS
     Route: 048

REACTIONS (37)
  - Altered visual depth perception [None]
  - Activities of daily living impaired [None]
  - Diarrhoea [None]
  - Vision blurred [None]
  - Blood cortisol decreased [None]
  - Tremor [None]
  - Headache [None]
  - Pain [None]
  - Malaise [None]
  - Tinnitus [None]
  - Dark circles under eyes [None]
  - Asthenia [None]
  - Swelling face [None]
  - Myalgia [None]
  - Impaired driving ability [None]
  - Gait disturbance [None]
  - Coordination abnormal [None]
  - Muscle spasms [None]
  - Dry skin [None]
  - Muscular weakness [None]
  - Dizziness [None]
  - Anxiety [None]
  - Rash maculo-papular [None]
  - Lymphadenopathy [None]
  - Musculoskeletal stiffness [None]
  - Trichorrhexis [None]
  - Dermatitis contact [None]
  - Lip swelling [None]
  - Fatigue [None]
  - Abasia [None]
  - Syncope [None]
  - Memory impairment [None]
  - Oral pain [None]
  - Cognitive disorder [None]
  - Mass [None]
  - Photosensitivity reaction [None]
  - Palpitations [None]
